FAERS Safety Report 9766039 (Version 1)
Quarter: 2013Q4

REPORT INFORMATION
  Report Type: Spontaneous
  Country: US (occurrence: US)
  Receive Date: 20131217
  Receipt Date: 20131217
  Transmission Date: 20140711
  Serious: No
  Sender: FDA-Public Use
  Company Number: US-GLAXOSMITHKLINE-A1016189A

PATIENT
  Age: 72 Year
  Sex: Male

DRUGS (4)
  1. VOTRIENT [Suspect]
     Indication: RENAL CELL CARCINOMA
     Dosage: 800MG IN THE MORNING
     Route: 048
     Dates: start: 20130118
  2. AMBIEN [Concomitant]
  3. FLOMAX [Concomitant]
  4. HYDROCODONE [Concomitant]

REACTIONS (7)
  - Fatigue [Not Recovered/Not Resolved]
  - Blood pressure fluctuation [Not Recovered/Not Resolved]
  - Decreased appetite [Not Recovered/Not Resolved]
  - Asthenia [Not Recovered/Not Resolved]
  - Malaise [Not Recovered/Not Resolved]
  - Ear infection [Recovered/Resolved]
  - Fatigue [Not Recovered/Not Resolved]
